FAERS Safety Report 6313293-0 (Version None)
Quarter: 2009Q3

REPORT INFORMATION
  Report Type: 
  Country: None (occurrence: None)
  Receive Date: 20090818
  Receipt Date: 20090817
  Transmission Date: 20100115
  Serious: Yes (Other)
  Sender: FDA-Public Use
  Company Number: A0799737A

PATIENT
  Age: 83 Year
  Sex: Male

DRUGS (5)
  1. WELLBUTRIN SR [Suspect]
     Indication: DEPRESSION
     Dosage: 100MG TWICE PER DAY
     Route: 048
     Dates: start: 20080901
  2. ELAVIL [Concomitant]
  3. ZETIA [Concomitant]
  4. VITAMINS [Concomitant]
  5. MINERAL TAB [Concomitant]

REACTIONS (6)
  - AGEUSIA [None]
  - DEAFNESS [None]
  - MUSCLE RIGIDITY [None]
  - MUSCULAR WEAKNESS [None]
  - TREMOR [None]
  - VISION BLURRED [None]
